FAERS Safety Report 6758576-5 (Version None)
Quarter: 2010Q2

REPORT INFORMATION
  Report Type: 
  Country: None (occurrence: None)
  Receive Date: 20100607
  Receipt Date: 20100531
  Transmission Date: 20101027
  Serious: Yes (Life-Threatening, Hospitalization, Disabling)
  Sender: FDA-Public Use
  Company Number: ES-CELGENEUS-144-50794-10060234

PATIENT
  Sex: Female
  Weight: 60 kg

DRUGS (4)
  1. VIDAZA [Suspect]
     Route: 050
     Dates: start: 20081204, end: 20081210
  2. PREDNISONE [Suspect]
     Indication: DRUG USE FOR UNKNOWN INDICATION
     Route: 065
     Dates: start: 20090107, end: 20090123
  3. ACYCLOVIR SODIUM [Concomitant]
     Indication: DRUG USE FOR UNKNOWN INDICATION
     Route: 065
     Dates: start: 20090107, end: 20090123
  4. DEXCLORFENIRAMINA [Concomitant]
     Indication: DRUG USE FOR UNKNOWN INDICATION
     Route: 065
     Dates: start: 20090107

REACTIONS (2)
  - FEBRILE NEUTROPENIA [None]
  - PNEUMONIA FUNGAL [None]
